FAERS Safety Report 18349570 (Version 1)
Quarter: 2020Q4

REPORT INFORMATION
  Report Type: Spontaneous
  Country: US (occurrence: US)
  Receive Date: 20201006
  Receipt Date: 20201006
  Transmission Date: 20210114
  Serious: No
  Sender: FDA-Public Use
  Company Number: None

PATIENT
  Age: 77 Year
  Sex: Female
  Weight: 95.4 kg

DRUGS (10)
  1. CEFTRIAXONE. [Concomitant]
     Active Substance: CEFTRIAXONE
     Dates: start: 20201002
  2. VALSARTAN. [Concomitant]
     Active Substance: VALSARTAN
     Dates: start: 20201001
  3. ACETAMINOPHEN. [Concomitant]
     Active Substance: ACETAMINOPHEN
     Dates: start: 20201001
  4. FUROSEMIDE. [Concomitant]
     Active Substance: FUROSEMIDE
     Dates: start: 20201001
  5. REMDESIVIR. [Suspect]
     Active Substance: REMDESIVIR
     Indication: COVID-19
     Route: 042
     Dates: start: 20201003, end: 20201006
  6. AZITHROMYCIN ANHYDROUS. [Concomitant]
     Active Substance: AZITHROMYCIN ANHYDROUS
     Dates: start: 20201002
  7. DEXAMTHASONE [Concomitant]
     Active Substance: DEXAMETHASONE
     Dates: start: 20201001
  8. HYDRALAZINE [Concomitant]
     Active Substance: HYDRALAZINE HYDROCHLORIDE
     Dates: start: 20201001
  9. ALBUTEROL. [Concomitant]
     Active Substance: ALBUTEROL
     Dates: start: 20201001
  10. MECLIZINE [Concomitant]
     Active Substance: MECLIZINE HYDROCHLORIDE
     Dates: start: 20201001

REACTIONS (1)
  - Dizziness [None]

NARRATIVE: CASE EVENT DATE: 20201006
